FAERS Safety Report 5664399-0 (Version None)
Quarter: 2008Q1

REPORT INFORMATION
  Report Type: 
  Country: None (occurrence: None)
  Receive Date: 20080314
  Receipt Date: 20080305
  Transmission Date: 20080703
  Serious: Yes (Hospitalization)
  Sender: FDA-Public Use
  Company Number: FR-JNJFOC-20080301381

PATIENT
  Age: 30 Year
  Sex: Male

DRUGS (4)
  1. REMICADE [Suspect]
  2. REMICADE [Suspect]
  3. REMICADE [Suspect]
  4. REMICADE [Suspect]
     Indication: ANKYLOSING SPONDYLITIS

REACTIONS (2)
  - LYMPH NODE TUBERCULOSIS [None]
  - PULMONARY TUBERCULOSIS [None]
